FAERS Safety Report 7581242-3 (Version None)
Quarter: 2011Q2

REPORT INFORMATION
  Report Type: 
  Country: None (occurrence: None)
  Receive Date: 20110629
  Receipt Date: 20110622
  Transmission Date: 20111010
  Serious: Yes (Death, Hospitalization)
  Sender: FDA-Public Use
  Company Number: PHHY2011IT53382

PATIENT
  Age: 78 Year
  Sex: Male

DRUGS (3)
  1. CHLORAMBUCIL [Suspect]
     Indication: CHRONIC LYMPHOCYTIC LEUKAEMIA
  2. CYCLOPHOSPHAMIDE [Suspect]
     Indication: CHRONIC LYMPHOCYTIC LEUKAEMIA
  3. PREDNISONE [Suspect]
     Indication: CHRONIC LYMPHOCYTIC LEUKAEMIA

REACTIONS (9)
  - HUMORAL IMMUNE DEFECT [None]
  - PROGRESSIVE MULTIFOCAL LEUKOENCEPHALOPATHY [None]
  - BLOOD OSMOLARITY INCREASED [None]
  - DYSPHAGIA [None]
  - RENAL FAILURE ACUTE [None]
  - ALTERED STATE OF CONSCIOUSNESS [None]
  - HEMIPLEGIA [None]
  - VISUAL ACUITY REDUCED [None]
  - CELL-MEDIATED IMMUNE DEFICIENCY [None]
